FAERS Safety Report 17855876 (Version 3)
Quarter: 2020Q2

REPORT INFORMATION
  Report Type: Spontaneous
  Country: IT (occurrence: IT)
  Receive Date: 20200603
  Receipt Date: 20200623
  Transmission Date: 20200714
  Serious: Yes (Hospitalization, Other)
  Sender: FDA-Public Use
  Company Number: NVSC2020IT082406

PATIENT
  Age: 44 Year
  Sex: Female
  Weight: 70 kg

DRUGS (12)
  1. METHYLPREDNISOLONE. [Suspect]
     Active Substance: METHYLPREDNISOLONE
     Indication: SPINAL EPIDURAL HAEMATOMA
     Dosage: UNK
     Route: 065
  2. CHIROCAINE [Suspect]
     Active Substance: LEVOBUPIVACAINE HYDROCHLORIDE
     Indication: PAIN
  3. SUFENTANIL [Suspect]
     Active Substance: SUFENTANIL
     Indication: PAIN MANAGEMENT
  4. ACETAMINOPHEN. [Concomitant]
     Active Substance: ACETAMINOPHEN
     Indication: PAIN MANAGEMENT
     Dosage: PARACETAMOL 1000 MG 3TIMES/DAY; PATIENT CONTROLLED EPIDURAL ANAESTHESIA
     Route: 065
  5. TRAMADOL. [Concomitant]
     Active Substance: TRAMADOL
     Indication: PAIN MANAGEMENT
     Dosage: PATIENT CONTROLLED EPIDURAL ANAESTHESIA
     Route: 048
  6. TRAMADOL. [Concomitant]
     Active Substance: TRAMADOL
     Indication: PAIN
  7. KETOROLAC [Suspect]
     Active Substance: KETOROLAC TROMETHAMINE
     Indication: PAIN MANAGEMENT
  8. SUFENTANIL [Suspect]
     Active Substance: SUFENTANIL
     Indication: PAIN
     Dosage: PATIENT CONTROLLED EPIDURAL ANAESTHESIA; SUFENTANIL 0.5 MCG/ML; 4 ML/H
     Route: 065
  9. KETOROLAC [Suspect]
     Active Substance: KETOROLAC TROMETHAMINE
     Indication: PAIN
     Dosage: PATIENT CONTROLLED EPIDURAL ANAESTHESIA
     Route: 042
  10. ACETAMINOPHEN. [Concomitant]
     Active Substance: ACETAMINOPHEN
     Indication: PAIN
  11. CHIROCAINE [Suspect]
     Active Substance: LEVOBUPIVACAINE HYDROCHLORIDE
     Indication: PAIN MANAGEMENT
     Dosage: PATIENT CONTROLLED EPIDURAL ANAESTHESIA, 0.15 PERCENT
     Route: 065
  12. DALTEPARIN [Suspect]
     Active Substance: DALTEPARIN
     Indication: ANTICOAGULANT THERAPY
     Dosage: 2500 INTERNATIONAL UNIT, QD
     Route: 065

REACTIONS (7)
  - Bladder disorder [Recovering/Resolving]
  - Ischaemia [Not Recovered/Not Resolved]
  - Drug ineffective [Unknown]
  - Urinary retention [Recovering/Resolving]
  - Injury [Not Recovered/Not Resolved]
  - Spinal epidural haematoma [Recovering/Resolving]
  - Motor dysfunction [Recovering/Resolving]
